FAERS Safety Report 15771558 (Version 1)
Quarter: 2018Q4

REPORT INFORMATION
  Report Type: Report from Study
  Country: US (occurrence: US)
  Receive Date: 20181228
  Receipt Date: 20181228
  Transmission Date: 20190205
  Serious: Yes (Hospitalization)
  Sender: FDA-Public Use
  Company Number: US-ROCHE-2232637

PATIENT
  Sex: Female

DRUGS (1)
  1. OCREVUS [Suspect]
     Active Substance: OCRELIZUMAB
     Indication: RELAPSING MULTIPLE SCLEROSIS
     Dosage: ONGOING:UNKNOWN?LATEST TREATMENT WAS ON 17/OCT/2018.
     Route: 065
     Dates: start: 20180330

REACTIONS (2)
  - Immunodeficiency [Not Recovered/Not Resolved]
  - Clostridium difficile infection [Not Recovered/Not Resolved]
